FAERS Safety Report 23596532 (Version 4)
Quarter: 2024Q2

REPORT INFORMATION
  Report Type: Spontaneous
  Country: US (occurrence: None)
  Receive Date: 20240305
  Receipt Date: 20240409
  Transmission Date: 20240716
  Serious: No
  Sender: FDA-Public Use
  Company Number: 2024A045160

PATIENT
  Sex: Female

DRUGS (1)
  1. TEZEPELUMAB [Suspect]
     Active Substance: TEZEPELUMAB
     Indication: Asthma
     Dosage: 210 MG/1.91 ML

REACTIONS (5)
  - Dizziness [Unknown]
  - Gait disturbance [Unknown]
  - Vertigo [Unknown]
  - Respiration abnormal [Unknown]
  - Drug ineffective [Unknown]
